FAERS Safety Report 22536428 (Version 1)
Quarter: 2023Q2

REPORT INFORMATION
  Report Type: Spontaneous
  Country: US (occurrence: None)
  Receive Date: 20230607
  Receipt Date: 20230607
  Transmission Date: 20230722
  Serious: Yes (Hospitalization)
  Sender: FDA-Public Use
  Company Number: None

PATIENT
  Sex: Female

DRUGS (1)
  1. CAPECITABINE [Suspect]
     Active Substance: CAPECITABINE
     Indication: Rectal cancer
     Dosage: OTHER QUANTITY : 3T;?FREQUENCY : TWICE A DAY;?
     Route: 048
     Dates: start: 202305

REACTIONS (2)
  - Haemorrhage [None]
  - Thrombosis [None]
